FAERS Safety Report 22294448 (Version 2)
Quarter: 2024Q2

REPORT INFORMATION
  Report Type: Spontaneous
  Country: US (occurrence: US)
  Receive Date: 20230508
  Receipt Date: 20240415
  Transmission Date: 20240715
  Serious: No
  Sender: FDA-Public Use
  Company Number: US-ASTELLAS-2022US021549

PATIENT
  Age: 68 Year
  Sex: Female

DRUGS (4)
  1. LEXISCAN [Suspect]
     Active Substance: REGADENOSON
     Indication: Scan myocardial perfusion
     Dosage: 0.4 MG, ONCE DAILY (ADMINISTERED FOR 12- 15 SECONDS)
     Route: 042
     Dates: start: 20220610, end: 20220610
  2. LEXISCAN [Suspect]
     Active Substance: REGADENOSON
     Indication: Scan myocardial perfusion
     Dosage: 0.4 MG, ONCE DAILY (ADMINISTERED FOR 12- 15 SECONDS)
     Route: 042
     Dates: start: 20220610, end: 20220610
  3. LEXISCAN [Suspect]
     Active Substance: REGADENOSON
     Indication: Scan myocardial perfusion
     Dosage: 0.4 MG, ONCE DAILY (ADMINISTERED FOR 12- 15 SECONDS)
     Route: 042
     Dates: start: 20220610, end: 20220610
  4. LEXISCAN [Suspect]
     Active Substance: REGADENOSON
     Indication: Scan myocardial perfusion
     Dosage: 0.4 MG, ONCE DAILY (ADMINISTERED FOR 12- 15 SECONDS)
     Route: 042
     Dates: start: 20220610, end: 20220610

REACTIONS (6)
  - Electrocardiogram change [Recovered/Resolved]
  - Oxygen saturation decreased [Recovered/Resolved]
  - Hypotension [Recovered/Resolved]
  - Dyspnoea [Recovered/Resolved]
  - Tremor [Recovered/Resolved]
  - Incorrect product administration duration [Unknown]

NARRATIVE: CASE EVENT DATE: 20220610
